FAERS Safety Report 11499667 (Version 1)
Quarter: 2015Q3

REPORT INFORMATION
  Report Type: Spontaneous
  Country: US (occurrence: None)
  Receive Date: 20150911
  Receipt Date: 20150911
  Transmission Date: 20151125
  Serious: Yes (Life-Threatening, Hospitalization)
  Sender: FDA-Public Use
  Company Number: None

PATIENT
  Age: 39 Year
  Sex: Male
  Weight: 77.2 kg

DRUGS (13)
  1. FARXIGA [Suspect]
     Active Substance: DAPAGLIFLOZIN PROPANEDIOL
     Indication: TYPE 2 DIABETES MELLITUS
     Dosage: 1 PILL BID ORAL
     Route: 048
  2. XARELTO [Concomitant]
     Active Substance: RIVAROXABAN
  3. METFORMIN (GLUCOPHAGE) [Concomitant]
  4. SENNA (SENOKOT) [Concomitant]
  5. DILAUDID [Concomitant]
     Active Substance: HYDROMORPHONE HYDROCHLORIDE
  6. ESCITALOPRAM (LEXAPRO) [Concomitant]
  7. MIRALAX [Concomitant]
     Active Substance: POLYETHYLENE GLYCOL 3350
  8. PREDNISONE (DELTASONE) [Concomitant]
  9. FENTANYL (DURAGESIC) [Concomitant]
  10. LORAZEPAM (ATIVAN) [Concomitant]
  11. HYDROCODONE-ACETAMINOPHEN (NORCO) [Concomitant]
  12. DOCUSATE SODIUM (COLACE) [Concomitant]
  13. INSULIN ASPART (NOVOLOG) [Concomitant]

REACTIONS (8)
  - Retching [None]
  - Back pain [None]
  - Blood glucose fluctuation [None]
  - Vomiting [None]
  - Tachypnoea [None]
  - Epigastric discomfort [None]
  - Diabetic ketoacidosis [None]
  - Herpes zoster [None]

NARRATIVE: CASE EVENT DATE: 20150909
